FAERS Safety Report 9836243 (Version 2)
Quarter: 2014Q1

REPORT INFORMATION
  Report Type: Spontaneous
  Country: GB (occurrence: GB)
  Receive Date: 20140123
  Receipt Date: 20140123
  Transmission Date: 20141002
  Serious: Yes (Other)
  Sender: FDA-Public Use
  Company Number: GB-BEH-2013038826

PATIENT
  Sex: 0

DRUGS (3)
  1. PRIVIGEN [Suspect]
     Indication: MYASTHENIA GRAVIS
  2. PRIVIGEN [Suspect]
  3. PRIVIGEN [Suspect]

REACTIONS (2)
  - Renal failure acute [Recovered/Resolved]
  - Haemolysis [Recovered/Resolved]
